FAERS Safety Report 7546291-X (Version None)
Quarter: 2011Q2

REPORT INFORMATION
  Report Type: 
  Country: None (occurrence: None)
  Receive Date: 20110614
  Receipt Date: 20040401
  Transmission Date: 20111010
  Serious: Yes (Death, Other)
  Sender: FDA-Public Use
  Company Number: PHFR2004GB01001

PATIENT
  Sex: Male

DRUGS (3)
  1. ANTIBIOTICS [Concomitant]
  2. HALOPERIDOL [Concomitant]
  3. CLOZAPINE [Suspect]
     Route: 048
     Dates: start: 19910312, end: 20040120

REACTIONS (9)
  - LOWER RESPIRATORY TRACT INFECTION [None]
  - PYREXIA [None]
  - SEDATION [None]
  - MALAISE [None]
  - LYMPHOMA [None]
  - ASTHENIA [None]
  - WEIGHT DECREASED [None]
  - HILAR LYMPHADENOPATHY [None]
  - LYMPHADENOPATHY [None]
